FAERS Safety Report 12404853 (Version 4)
Quarter: 2016Q4

REPORT INFORMATION
  Report Type: Spontaneous
  Country: US (occurrence: US)
  Receive Date: 20160525
  Receipt Date: 20161013
  Transmission Date: 20170207
  Serious: Yes (Other)
  Sender: FDA-Public Use
  Company Number: US-JNJFOC-20160516507

PATIENT
  Sex: Female

DRUGS (13)
  1. TOPAMAX [Suspect]
     Active Substance: TOPIRAMATE
     Indication: PAIN
     Dosage: 300MG EVERY MORNING AND 200MG EVERY NIGHTLY
     Route: 048
  2. TOPAMAX [Suspect]
     Active Substance: TOPIRAMATE
     Indication: SYSTEMIC LUPUS ERYTHEMATOSUS
     Dosage: ADDITIONALLY TWO DIFFFERENT STRENGTHS RECEIVED ARE 50 AND 200MG
     Route: 048
     Dates: start: 1994
  3. TOPAMAX [Suspect]
     Active Substance: TOPIRAMATE
     Indication: SYSTEMIC LUPUS ERYTHEMATOSUS
     Dosage: 300MG EVERY MORNING AND 200MG EVERY NIGHTLY
     Route: 048
  4. TOPAMAX [Suspect]
     Active Substance: TOPIRAMATE
     Indication: FIBROMYALGIA
     Dosage: 300MG EVERY MORNING AND 200MG EVERY NIGHTLY
     Route: 048
  5. TOPAMAX [Suspect]
     Active Substance: TOPIRAMATE
     Indication: PAIN
     Dosage: ADDITIONALLY TWO DIFFFERENT STRENGTHS RECEIVED ARE 50 AND 200MG
     Route: 048
     Dates: start: 1994
  6. TOPAMAX [Suspect]
     Active Substance: TOPIRAMATE
     Indication: PAIN
     Dosage: 300 MG IN THE MORNING AND 200 MG IN THE EVENING
     Route: 048
     Dates: start: 1994
  7. TOPAMAX [Suspect]
     Active Substance: TOPIRAMATE
     Indication: FIBROMYALGIA
     Dosage: 300 MG IN THE MORNING AND 200 MG IN THE EVENING
     Route: 048
     Dates: start: 1994
  8. TOPAMAX [Suspect]
     Active Substance: TOPIRAMATE
     Indication: FIBROMYALGIA
     Dosage: ADDITIONALLY TWO DIFFFERENT STRENGTHS RECEIVED ARE 50 AND 200MG
     Route: 048
     Dates: start: 1994
  9. TOPAMAX [Suspect]
     Active Substance: TOPIRAMATE
     Indication: MIGRAINE
     Dosage: ADDITIONALLY TWO DIFFFERENT STRENGTHS RECEIVED ARE 50 AND 200MG
     Route: 048
     Dates: start: 1994
  10. IMITREX [Concomitant]
     Active Substance: SUMATRIPTAN SUCCINATE
     Indication: MIGRAINE
     Route: 048
     Dates: start: 1994
  11. TOPAMAX [Suspect]
     Active Substance: TOPIRAMATE
     Indication: SYSTEMIC LUPUS ERYTHEMATOSUS
     Dosage: 300 MG IN THE MORNING AND 200 MG IN THE EVENING
     Route: 048
     Dates: start: 1994
  12. TOPAMAX [Suspect]
     Active Substance: TOPIRAMATE
     Indication: MIGRAINE
     Dosage: 300 MG IN THE MORNING AND 200 MG IN THE EVENING
     Route: 048
     Dates: start: 1994
  13. TOPAMAX [Suspect]
     Active Substance: TOPIRAMATE
     Indication: MIGRAINE
     Dosage: 300MG EVERY MORNING AND 200MG EVERY NIGHTLY
     Route: 048

REACTIONS (15)
  - Intervertebral disc degeneration [Not Recovered/Not Resolved]
  - Hypersensitivity [Unknown]
  - Foot deformity [Unknown]
  - Systemic lupus erythematosus [Not Recovered/Not Resolved]
  - Onychomycosis [Unknown]
  - Off label use [Unknown]
  - Dizziness [Unknown]
  - Reaction to colouring [Unknown]
  - Glaucoma [Unknown]
  - Prescribed overdose [Unknown]
  - Pharyngeal oedema [Unknown]
  - Rheumatoid arthritis [Not Recovered/Not Resolved]
  - Weight decreased [Recovered/Resolved]
  - Cataract [Unknown]
  - Dyspnoea [Unknown]

NARRATIVE: CASE EVENT DATE: 1994
